FAERS Safety Report 25265150 (Version 2)
Quarter: 2025Q3

REPORT INFORMATION
  Report Type: Report from Study
  Country: US (occurrence: US)
  Receive Date: 20250502
  Receipt Date: 20250809
  Transmission Date: 20251020
  Serious: Yes (Death, Other)
  Sender: ALEXION PHARMACEUTICALS
  Company Number: US-ASTRAZENECA-202504USA027888US

PATIENT
  Age: 55 Year
  Sex: Female

DRUGS (1)
  1. STRENSIQ [Suspect]
     Active Substance: ASFOTASE ALFA
     Indication: Juvenile idiopathic arthritis
     Dosage: 2 MILLIGRAM/KILOGRAM, TIW
     Route: 065

REACTIONS (1)
  - Death [Fatal]
